FAERS Safety Report 18125659 (Version 2)
Quarter: 2020Q3

REPORT INFORMATION
  Report Type: Other
  Country: JP (occurrence: JP)
  Receive Date: 20200807
  Receipt Date: 20200819
  Transmission Date: 20201103
  Serious: Yes (Hospitalization)
  Sender: FDA-Public Use
  Company Number: JP-ROCHE-2655825

PATIENT
  Age: 51 Year
  Sex: Female

DRUGS (2)
  1. XELODA [Suspect]
     Active Substance: CAPECITABINE
     Indication: PANCREATIC NEUROENDOCRINE TUMOUR
     Dosage: DOSAGE IS UNCERTAIN.
     Route: 048
  2. TEMOZOLOMIDE. [Concomitant]
     Active Substance: TEMOZOLOMIDE
     Indication: PANCREATIC NEUROENDOCRINE TUMOUR
     Dosage: DOSAGE IS UNCERTAIN.
     Route: 065

REACTIONS (3)
  - Intentional product use issue [Unknown]
  - Off label use [Unknown]
  - Ectopic ACTH syndrome [Recovering/Resolving]
